FAERS Safety Report 9496726 (Version 1)
Quarter: 2013Q3

REPORT INFORMATION
  Report Type: Spontaneous
  Country: US (occurrence: None)
  Receive Date: 20130830
  Receipt Date: 20130830
  Transmission Date: 20140515
  Serious: No
  Sender: FDA-Public Use
  Company Number: 2013243985

PATIENT
  Age: 69 Year
  Sex: Male

DRUGS (1)
  1. LANSOPRAZOLE [Suspect]
     Indication: ALLERGY TEST

REACTIONS (1)
  - Allergy test positive [None]
